FAERS Safety Report 8862149 (Version 2)
Quarter: 2012Q4

REPORT INFORMATION
  Report Type: 
  Country: US (occurrence: US)
  Receive Date: 20121026
  Receipt Date: 20121205
  Transmission Date: 20130627
  Serious: Yes (Hospitalization)
  Sender: FDA-Public Use
  Company Number: US-B.I. PHARMACEUTICALS,INC./RIDGEFIELD-2012-BP-26282BP

PATIENT
  Age: 80 Year
  Sex: Male
  Weight: 68 kg

DRUGS (8)
  1. PRADAXA [Suspect]
     Indication: CEREBROVASCULAR ACCIDENT PROPHYLAXIS
     Dosage: 300 mg
     Route: 048
     Dates: start: 201202
  2. SPIRIVA [Suspect]
     Indication: CHRONIC OBSTRUCTIVE PULMONARY DISEASE
     Dosage: 18 mcg
     Route: 055
     Dates: start: 2006
  3. METOPROLOL  TARTRATE [Concomitant]
     Indication: HYPERTENSION
     Dosage: 100 mg
     Route: 048
  4. DILTIAZEM [Concomitant]
     Indication: CARDIAC DISORDER
     Dosage: 120 mg
     Route: 048
     Dates: start: 201202
  5. ASPIRIN [Concomitant]
     Indication: CARDIAC DISORDER
     Dosage: 81 mg
     Route: 048
  6. TAMSULOSIN [Concomitant]
     Indication: PROSTATOMEGALY
     Dosage: 0.8 mg
     Route: 048
     Dates: start: 2007
  7. CRESTOR [Concomitant]
     Indication: BLOOD CHOLESTEROL INCREASED
     Dosage: 20 mg
     Route: 048
  8. METFORMIN [Concomitant]
     Indication: TYPE 2 DIABETES MELLITUS
     Dosage: 1700 mg
     Route: 048
     Dates: start: 20121014

REACTIONS (2)
  - Atrial fibrillation [Recovered/Resolved]
  - Urinary tract infection [Unknown]
